FAERS Safety Report 18408848 (Version 1)
Quarter: 2020Q4

REPORT INFORMATION
  Report Type: Report from Study
  Country: DE (occurrence: DE)
  Receive Date: 20201021
  Receipt Date: 20201021
  Transmission Date: 20210114
  Serious: Yes (Other)
  Sender: FDA-Public Use
  Company Number: DE-SHILPA MEDICARE LIMITED-SML-DE-2020-00458

PATIENT
  Age: 76 Year
  Sex: Male
  Weight: 77 kg

DRUGS (23)
  1. VECTIBIX [Suspect]
     Active Substance: PANITUMUMAB
     Dosage: 468 MILLIGRAM
     Route: 042
     Dates: start: 20200205
  2. FLUOROURACIL. [Suspect]
     Active Substance: FLUOROURACIL
     Dosage: 567 MILLIGRAM
     Route: 040
     Dates: start: 20200325
  3. IRINOTECAN, UNKNOWN [Suspect]
     Active Substance: IRINOTECAN
     Dosage: 349 MILLIGRAM
     Route: 065
     Dates: start: 20200205
  4. FLUOROURACIL. [Suspect]
     Active Substance: FLUOROURACIL
     Dosage: 573 MILLIGRAM
     Route: 042
     Dates: start: 20200506
  5. FOLINIC ACID [Suspect]
     Active Substance: LEUCOVORIN
     Indication: COLORECTAL CANCER METASTATIC
     Dosage: 384 MILLIGRAM
     Route: 065
     Dates: start: 20200219
  6. IRINOTECAN, UNKNOWN [Suspect]
     Active Substance: IRINOTECAN
     Indication: COLORECTAL CANCER METASTATIC
     Dosage: 255 MILLIGRAM
     Route: 065
     Dates: start: 20200325
  7. VECTIBIX [Suspect]
     Active Substance: PANITUMUMAB
     Dosage: 432 MILLIGRAM
     Route: 042
     Dates: start: 20200724
  8. FLUOROURACIL. [Suspect]
     Active Substance: FLUOROURACIL
     Dosage: 3402 MILLIGRAM
     Route: 040
     Dates: start: 20200325
  9. FLUOROURACIL. [Suspect]
     Active Substance: FLUOROURACIL
     Dosage: 4656 MILLIGRAM
     Route: 040
     Dates: start: 20200205
  10. IRINOTECAN, UNKNOWN [Suspect]
     Active Substance: IRINOTECAN
     Dosage: 346 MILLIGRAM
     Route: 065
     Dates: start: 20200219
  11. VECTIBIX [Suspect]
     Active Substance: PANITUMUMAB
     Indication: COLORECTAL CANCER METASTATIC
     Dosage: 456 MILLIGRAM
     Route: 042
     Dates: start: 20200506
  12. VECTIBIX [Suspect]
     Active Substance: PANITUMUMAB
     Dosage: 444 MILLIGRAM
     Route: 042
     Dates: start: 20200710
  13. FLUOROURACIL. [Suspect]
     Active Substance: FLUOROURACIL
     Dosage: 3438 MILLIGRAM
     Route: 042
     Dates: start: 20200506
  14. VECTIBIX [Suspect]
     Active Substance: PANITUMUMAB
     Dosage: 444 MILLIGRAM
     Route: 042
     Dates: start: 20200325
  15. FLUOROURACIL. [Suspect]
     Active Substance: FLUOROURACIL
     Dosage: 4608 MILLIGRAM
     Route: 040
     Dates: start: 20200219
  16. FLUOROURACIL. [Suspect]
     Active Substance: FLUOROURACIL
     Dosage: 776 MILLIGRAM
     Route: 040
     Dates: start: 20200205
  17. FOLINIC ACID [Suspect]
     Active Substance: LEUCOVORIN
     Dosage: 287 MILLIGRAM
     Route: 065
     Dates: start: 20200506
  18. VECTIBIX [Suspect]
     Active Substance: PANITUMUMAB
     Dosage: 462 MILLIGRAM
     Route: 042
     Dates: start: 20200219
  19. FLUOROURACIL. [Suspect]
     Active Substance: FLUOROURACIL
     Indication: COLORECTAL CANCER METASTATIC
     Dosage: 768 MILLIGRAM
     Route: 040
     Dates: start: 20200219
  20. ACETYLSALICYLIC ACID [Concomitant]
     Active Substance: ASPIRIN
     Indication: COAGULOPATHY
     Route: 048
  21. VECTIBIX [Suspect]
     Active Substance: PANITUMUMAB
     Dosage: 420 MILLIGRAM
     Route: 042
     Dates: start: 20200904
  22. FOLINIC ACID [Suspect]
     Active Substance: LEUCOVORIN
     Dosage: 284 MILLIGRAM
     Route: 065
     Dates: start: 20200325
  23. FOLINIC ACID [Suspect]
     Active Substance: LEUCOVORIN
     Dosage: 388 MILLIGRAM
     Route: 065
     Dates: start: 20200205

REACTIONS (1)
  - Rash maculo-papular [Recovered/Resolved]

NARRATIVE: CASE EVENT DATE: 20200506
